FAERS Safety Report 9775425 (Version 1)
Quarter: 2013Q4

REPORT INFORMATION
  Report Type: Spontaneous
  Country: US (occurrence: US)
  Receive Date: 20131220
  Receipt Date: 20131220
  Transmission Date: 20140711
  Serious: No
  Sender: FDA-Public Use
  Company Number: US-GALDERMA-US13003391

PATIENT
  Age: 43 Year
  Sex: Male

DRUGS (7)
  1. MIRVASO (BRIMONIDINE) TOPICAL GEL, 0.33% [Suspect]
     Indication: ROSACEA
     Dosage: 0.33%
     Route: 061
     Dates: start: 20131017, end: 20131026
  2. METROGEL  (METRONIDAZOLE) GEL, 1% [Concomitant]
     Indication: ROSACEA
     Route: 061
     Dates: start: 1989
  3. FINACEA (AZELAIC ACID) [Concomitant]
     Indication: ROSACEA
     Dosage: 15%
     Route: 061
  4. CETAPHIL GENTLE CLEANSING BAR [Concomitant]
     Indication: THERAPEUTIC SKIN CARE TOPICAL
     Route: 061
  5. CETAPHIL MOISTURIZING LOTION [Concomitant]
     Indication: DRY SKIN PROPHYLAXIS
     Route: 061
  6. ZOLOFT [Concomitant]
  7. WELLBUTRIN [Concomitant]

REACTIONS (6)
  - Rebound effect [Recovered/Resolved]
  - Condition aggravated [Recovered/Resolved]
  - Feeling hot [Recovered/Resolved]
  - Pallor [Recovered/Resolved]
  - Flushing [Recovered/Resolved]
  - Erythema [Recovered/Resolved]
